FAERS Safety Report 6574858-4 (Version None)
Quarter: 2010Q1

REPORT INFORMATION
  Report Type: 
  Country: None (occurrence: None)
  Receive Date: 20100209
  Receipt Date: 20100127
  Transmission Date: 20100710
  Serious: Yes (Other)
  Sender: FDA-Public Use
  Company Number: PHHY2010JP05053

PATIENT
  Age: 47 Year
  Sex: Female

DRUGS (5)
  1. CYCLOSPORINE [Suspect]
     Indication: PEMPHIGOID
     Dosage: 3 MG/KG, DAILY
  2. MIZORIBINE [Concomitant]
     Indication: PEMPHIGOID
     Dosage: 150 MG
  3. PREDNISOLONE [Concomitant]
     Indication: PEMPHIGOID
     Dosage: 0.5 MG/KG
  4. PREDNISOLONE [Concomitant]
     Dosage: 0.8 MG/KG
  5. PREDNISOLONE [Concomitant]
     Dosage: 0.35 MG/KG

REACTIONS (2)
  - DRUG INEFFECTIVE [None]
  - PERITONITIS [None]
